FAERS Safety Report 8890072 (Version 1)
Quarter: 2012Q4

REPORT INFORMATION
  Report Type: Spontaneous
  Country: US (occurrence: None)
  Receive Date: 20121105
  Receipt Date: 20121105
  Transmission Date: 20130627
  Serious: Yes (Hospitalization)
  Sender: FDA-Public Use
  Company Number: None

PATIENT
  Age: 67 Year
  Sex: Male
  Weight: 108.86 kg

DRUGS (1)
  1. CIALIS [Suspect]
     Indication: ERECTILE DYSFUNCTION
     Dosage: 2.5mg daily po
     Route: 048
     Dates: start: 20120820, end: 20120929

REACTIONS (4)
  - Angina pectoris [None]
  - Blood pressure increased [None]
  - Heart rate increased [None]
  - Hearing impaired [None]
